FAERS Safety Report 12470201 (Version 2)
Quarter: 2016Q3

REPORT INFORMATION
  Report Type: Spontaneous
  Country: JP (occurrence: JP)
  Receive Date: 20160616
  Receipt Date: 20160729
  Transmission Date: 20161109
  Serious: Yes (Hospitalization, Other)
  Sender: FDA-Public Use
  Company Number: JP-009507513-1606JPN002736

PATIENT
  Age: 65 Year
  Sex: Male

DRUGS (2)
  1. ZYPREXA [Concomitant]
     Active Substance: OLANZAPINE
     Indication: DEPRESSION
     Dosage: 10 MG, QD
     Route: 048
     Dates: start: 201604, end: 20160530
  2. REMERON [Suspect]
     Active Substance: MIRTAZAPINE
     Indication: DEPRESSION
     Dosage: 15 MG, QD
     Route: 048
     Dates: start: 201604, end: 20160530

REACTIONS (4)
  - Gallbladder oedema [Recovered/Resolved]
  - Hepatic function abnormal [Recovered/Resolved]
  - Gallbladder enlargement [Recovered/Resolved]
  - Hepatic steatosis [Recovered/Resolved]

NARRATIVE: CASE EVENT DATE: 20160526
